FAERS Safety Report 4622840-6 (Version None)
Quarter: 2005Q1

REPORT INFORMATION
  Report Type: 
  Country: None (occurrence: None)
  Receive Date: 20050330
  Receipt Date: 20050308
  Transmission Date: 20050727
  Serious: Yes (Death, Other)
  Sender: FDA-Public Use
  Company Number: US-GLAXOSMITHKLINE-A0548906A

PATIENT
  Sex: Female

DRUGS (2)
  1. NAVELBINE [Suspect]
     Indication: BREAST CANCER METASTATIC
     Dosage: 36MGM2 CYCLIC
     Route: 065
     Dates: start: 20041125
  2. GEMCITABINE [Suspect]
     Indication: BREAST CANCER METASTATIC
     Dosage: 1440MGM2 CYCLIC
     Route: 042
     Dates: start: 20041125

REACTIONS (7)
  - BLOOD BILIRUBIN INCREASED [None]
  - COMA HEPATIC [None]
  - DISEASE PROGRESSION [None]
  - GENERAL PHYSICAL HEALTH DETERIORATION [None]
  - JAUNDICE [None]
  - PERFORMANCE STATUS DECREASED [None]
  - TRANSAMINASES INCREASED [None]
